FAERS Safety Report 6208753-7 (Version None)
Quarter: 2009Q2

REPORT INFORMATION
  Report Type: 
  Country: None (occurrence: None)
  Receive Date: 20090529
  Receipt Date: 20090427
  Transmission Date: 20091009
  Serious: Yes (Hospitalization)
  Sender: FDA-Public Use
  Company Number: JP-ROCHE-630095

PATIENT
  Sex: Female
  Weight: 46 kg

DRUGS (6)
  1. PEG-INTERFERON ALFA 2A (RO 25-8310) [Suspect]
     Indication: HEPATIC CIRRHOSIS
     Route: 058
     Dates: start: 20071206, end: 20081029
  2. RIBAVIRIN [Suspect]
     Indication: HEPATIC CIRRHOSIS
     Route: 048
     Dates: start: 20071206, end: 20081105
  3. MAGLAX [Concomitant]
     Route: 048
  4. LOXONIN [Concomitant]
     Route: 048
  5. LAXOBERON [Concomitant]
     Dosage: INCREASE AND DECREASE SINGLE USE AND TEN DROPS-PROPERLY
     Route: 048
  6. ALOSENN [Concomitant]
     Route: 048
     Dates: start: 20080903

REACTIONS (1)
  - COMPRESSION FRACTURE [None]
